FAERS Safety Report 6508008-7 (Version None)
Quarter: 2009Q4

REPORT INFORMATION
  Report Type: 
  Country: None (occurrence: None)
  Receive Date: 20091201
  Receipt Date: 20090824
  Transmission Date: 20100525
  Serious: Yes (Hospitalization)
  Sender: FDA-Public Use
  Company Number: 2009-194924-NL

PATIENT
  Age: 31 Year
  Sex: Female
  Weight: 123.3784 kg

DRUGS (3)
  1. NUVARING [Suspect]
     Indication: CONTRACEPTION
     Dosage: 1 DF
     Dates: start: 20060801, end: 20061003
  2. HYDROCHLOROTHIAZIDE [Concomitant]
  3. IMITREX [Concomitant]

REACTIONS (2)
  - PULMONARY EMBOLISM [None]
  - TONSILLECTOMY [None]
